FAERS Safety Report 4309955-7 (Version None)
Quarter: 2004Q1

REPORT INFORMATION
  Report Type: 
  Country: None (occurrence: None)
  Receive Date: 20040303
  Receipt Date: 20040220
  Transmission Date: 20041129
  Serious: Yes (Life-Threatening)
  Sender: FDA-Public Use
  Company Number: FR-BRISTOL-MYERS SQUIBB COMPANY-12512901

PATIENT
  Age: 55 Year
  Sex: Male

DRUGS (4)
  1. CEFACIDAL INJ 1 G [Suspect]
     Route: 042
     Dates: start: 20031103, end: 20031103
  2. TRACRIUM [Suspect]
     Route: 042
     Dates: start: 20031103, end: 20031103
  3. DIPRIVAN [Suspect]
     Route: 042
     Dates: start: 20031103, end: 20031103
  4. SUFENTA [Suspect]
     Route: 042
     Dates: start: 20031103, end: 20031103

REACTIONS (1)
  - ANAPHYLACTIC SHOCK [None]
